FAERS Safety Report 5842677-X (Version None)
Quarter: 2008Q3

REPORT INFORMATION
  Report Type: 
  Country: None (occurrence: None)
  Receive Date: 20080808
  Receipt Date: 20080806
  Transmission Date: 20090109
  Serious: Yes (Other)
  Sender: FDA-Public Use
  Company Number: 2008SP011366

PATIENT
  Age: 40 Year
  Sex: Female

DRUGS (2)
  1. CLARITIN [Suspect]
     Indication: NASAL CONGESTION
     Dosage: PO
     Route: 048
     Dates: start: 20080603
  2. METOPROLOL (CON.) [Concomitant]

REACTIONS (4)
  - BLOOD PRESSURE INCREASED [None]
  - OBSTRUCTIVE AIRWAYS DISORDER [None]
  - PHARMACEUTICAL PRODUCT COMPLAINT [None]
  - PHARYNGEAL HYPOAESTHESIA [None]
